FAERS Safety Report 4880894-6 (Version None)
Quarter: 2005Q4

REPORT INFORMATION
  Report Type: 
  Country: None (occurrence: None)
  Receive Date: 20051223
  Receipt Date: 20051104
  Transmission Date: 20060501
  Serious: No
  Sender: FDA-Public Use
  Company Number: 05P-163-0316519-00

PATIENT
  Age: 75 Year
  Sex: Male
  Weight: 63.5036 kg

DRUGS (7)
  1. HUMIRA [Suspect]
     Indication: RHEUMATOID ARTHRITIS
     Dosage: 40 MG, 1 IN 1 WK, SUBCUTANEOUS
     Route: 058
     Dates: start: 20050901
  2. METHOTREXATE [Concomitant]
  3. FOLIC ACID [Concomitant]
  4. COMBIVENT [Concomitant]
  5. ALBUTEROL [Concomitant]
  6. RABEPRAZOLE SODIUM [Concomitant]
  7. SERETIDE MITE [Concomitant]

REACTIONS (3)
  - DYSPNOEA [None]
  - HEART RATE INCREASED [None]
  - OXYGEN SATURATION DECREASED [None]
